FAERS Safety Report 8246126-6 (Version None)
Quarter: 2012Q1

REPORT INFORMATION
  Report Type: 
  Country: None (occurrence: None)
  Receive Date: 20120330
  Receipt Date: 20120326
  Transmission Date: 20120608
  Serious: Yes (Other)
  Sender: FDA-Public Use
  Company Number: PHHY2010CA28510

PATIENT
  Sex: Female

DRUGS (3)
  1. ZOLEDRONOC ACID [Suspect]
     Dosage: 5 MG, UNK
     Route: 042
     Dates: start: 20100514
  2. ZOLEDRONOC ACID [Suspect]
     Indication: OSTEOPOROSIS
     Dosage: 5 MG
     Route: 042
     Dates: start: 20090403
  3. ZOLEDRONOC ACID [Suspect]
     Dosage: 5 MG, UNK
     Route: 042
     Dates: start: 20110513

REACTIONS (5)
  - ROAD TRAFFIC ACCIDENT [None]
  - BONE PAIN [None]
  - RIB FRACTURE [None]
  - NEPHROLITHIASIS [None]
  - MYALGIA [None]
